FAERS Safety Report 23577939 (Version 1)
Quarter: 2024Q1

REPORT INFORMATION
  Report Type: Report from Study
  Country: US (occurrence: US)
  Receive Date: 20240228
  Receipt Date: 20240228
  Transmission Date: 20240410
  Serious: Yes (Other)
  Sender: FDA-Public Use
  Company Number: US-ABBVIE-5653640

PATIENT
  Sex: Male

DRUGS (1)
  1. RINVOQ [Suspect]
     Active Substance: UPADACITINIB
     Indication: Ankylosing spondylitis
     Route: 048
     Dates: start: 20230215

REACTIONS (5)
  - Transplant rejection [Unknown]
  - Postoperative wound infection [Unknown]
  - Implant site thrombosis [Unknown]
  - Peripheral swelling [Unknown]
  - Joint swelling [Unknown]
